FAERS Safety Report 21909812 (Version 1)
Quarter: 2023Q1

REPORT INFORMATION
  Report Type: 
  Country: None (occurrence: PT)
  Receive Date: 20230125
  Receipt Date: 20230125
  Transmission Date: 20230417
  Serious: Yes (Hospitalization, Other)
  Sender: FDA-Public Use
  Company Number: None

PATIENT
  Age: 32 Year
  Sex: Female

DRUGS (1)
  1. KETOROLAC TROMETHAMINE [Suspect]
     Active Substance: KETOROLAC TROMETHAMINE

REACTIONS (5)
  - Back pain [Recovered/Resolved]
  - Paraesthesia [Recovered/Resolved]
  - Procedural headache [Recovered/Resolved]
  - Subarachnoid haematoma [Recovered/Resolved]
  - Subdural haematoma [Recovered/Resolved]
